FAERS Safety Report 7995152-0 (Version None)
Quarter: 2011Q4

REPORT INFORMATION
  Report Type: 
  Country: None (occurrence: None)
  Receive Date: 20111220
  Receipt Date: 20111213
  Transmission Date: 20120403
  Serious: Yes (Hospitalization)
  Sender: FDA-Public Use
  Company Number: JP-GLAXOSMITHKLINE-B0761940A

PATIENT
  Age: 43 Year
  Sex: Female

DRUGS (1)
  1. PAXIL [Suspect]
     Indication: PRODUCT USED FOR UNKNOWN INDICATION
     Dosage: 380MG PER DAY
     Route: 048

REACTIONS (4)
  - SUICIDE ATTEMPT [None]
  - OVERDOSE [None]
  - RESPIRATORY DEPRESSION [None]
  - ALTERED STATE OF CONSCIOUSNESS [None]
